FAERS Safety Report 8594508-5 (Version None)
Quarter: 2012Q3

REPORT INFORMATION
  Report Type: 
  Country: None (occurrence: None)
  Receive Date: 20120724
  Receipt Date: 20120511
  Transmission Date: 20120928
  Serious: Yes (Death, Other)
  Sender: FDA-Public Use
  Company Number: 2011028167

PATIENT
  Age: 70 Year
  Sex: Male

DRUGS (2)
  1. COMMON VARIABLE IMMUNODEFICIENCY (COMMON VARIABLE IMMUNODEFICIENCY) [Concomitant]
  2. PRIVIGEN [Suspect]
     Indication: IMMUNODEFICIENCY COMMON VARIABLE
     Dosage: 60 G INTRAVENOUS (NOT OTHERWISE SPECIFIED)
     Dates: start: 20100930

REACTIONS (4)
  - SEPSIS [None]
  - REFRACTORY ANAEMIA WITH AN EXCESS OF BLASTS [None]
  - MYELODYSPLASTIC SYNDROME [None]
  - PANCYTOPENIA [None]
